FAERS Safety Report 21553824 (Version 2)
Quarter: 2022Q4

REPORT INFORMATION
  Report Type: Other
  Country: PT (occurrence: PT)
  Receive Date: 20221104
  Receipt Date: 20221110
  Transmission Date: 20230113
  Serious: Yes (Disabling, Other)
  Sender: FDA-Public Use
  Company Number: None

PATIENT
  Age: 65 Year
  Sex: Female

DRUGS (6)
  1. MIRABEGRON [Suspect]
     Active Substance: MIRABEGRON
     Indication: Urinary incontinence
     Dosage: 50 MG, ONCE DAILY (1 TABLET PER DAY)
     Route: 065
     Dates: start: 202207, end: 20221009
  2. LEVETIRACETAM [Concomitant]
     Active Substance: LEVETIRACETAM
     Indication: Epilepsy
     Dosage: 500 MG, EVERY 12 HOURS (500 MG IN THE MORNING AND 500 MG IN THE EVENING)
     Route: 065
  3. LEVETIRACETAM [Concomitant]
     Active Substance: LEVETIRACETAM
     Dosage: 1000 MG, EVERY 12 HOURS (1000 MG IN THE MORNING AND 1000 MG IN THE EVENING)
     Route: 065
  4. PANTOPRAZOLE SODIUM [Concomitant]
     Active Substance: PANTOPRAZOLE SODIUM
     Indication: Gastric disorder
     Dosage: 20 MG, ONCE DAILY (1 TABLET PER DAY)
     Route: 065
  5. FENOFIBRATE\SIMVASTATIN [Concomitant]
     Active Substance: FENOFIBRATE\SIMVASTATIN
     Indication: Product used for unknown indication
     Route: 065
  6. BROMAZEPAM [Concomitant]
     Active Substance: BROMAZEPAM
     Indication: Insomnia
     Route: 065

REACTIONS (6)
  - Ecchymosis [Recovered/Resolved]
  - Urinary tract infection [Recovered/Resolved]
  - Bladder pain [Recovered/Resolved]
  - Insomnia [Recovered/Resolved]
  - Swelling face [Recovered/Resolved]
  - Palpitations [Recovered/Resolved]

NARRATIVE: CASE EVENT DATE: 20220701
